FAERS Safety Report 4983102-0 (Version None)
Quarter: 2006Q2

REPORT INFORMATION
  Report Type: 
  Country: None (occurrence: None)
  Receive Date: 20060426
  Receipt Date: 20060414
  Transmission Date: 20061013
  Serious: Yes (Hospitalization)
  Sender: FDA-Public Use
  Company Number: US-JNJFOC-20060404170

PATIENT
  Age: 74 Year
  Sex: Female

DRUGS (1)
  1. DURAGESIC-100 [Suspect]

REACTIONS (6)
  - ASTHENIA [None]
  - ATRIOVENTRICULAR BLOCK COMPLETE [None]
  - CHEST PAIN [None]
  - DYSPNOEA [None]
  - INFLUENZA LIKE ILLNESS [None]
  - SINUS BRADYCARDIA [None]
